FAERS Safety Report 5721306-X (Version None)
Quarter: 2008Q2

REPORT INFORMATION
  Report Type: 
  Country: None (occurrence: None)
  Receive Date: 20080429
  Receipt Date: 20080417
  Transmission Date: 20081010
  Serious: Yes (Hospitalization)
  Sender: FDA-Public Use
  Company Number: CA-BAYER-200711962GDS

PATIENT
  Age: 38 Year
  Sex: Male

DRUGS (1)
  1. 222 TABLETS [Suspect]
     Indication: BACK PAIN
     Route: 048

REACTIONS (9)
  - DEAFNESS [None]
  - HYPERVENTILATION [None]
  - HYPOAESTHESIA [None]
  - INTENTIONAL OVERDOSE [None]
  - PARAESTHESIA [None]
  - RESPIRATORY RATE DECREASED [None]
  - TACHYCARDIA [None]
  - THERAPEUTIC AGENT TOXICITY [None]
  - TINNITUS [None]
